FAERS Safety Report 19801105 (Version 2)
Quarter: 2021Q4

REPORT INFORMATION
  Report Type: Report from Study
  Country: US (occurrence: US)
  Receive Date: 20210907
  Receipt Date: 20211007
  Transmission Date: 20220303
  Serious: Yes (Death, Hospitalization)
  Sender: FDA-Public Use
  Company Number: US-TAIHO ONCOLOGY INC-EU-2021-02815

PATIENT
  Sex: Female

DRUGS (7)
  1. LONSURF [Suspect]
     Active Substance: TIPIRACIL HYDROCHLORIDE\TRIFLURIDINE
     Indication: Colorectal cancer stage IV
     Dosage: CYCLE 1
     Route: 048
     Dates: start: 20210217
  2. LOSARTAN [Concomitant]
     Active Substance: LOSARTAN
  3. ESCITALOPRAM [Concomitant]
     Active Substance: ESCITALOPRAM OXALATE
  4. CHOLECALCIFEROL D [Concomitant]
  5. ZIPRASIDONE [Concomitant]
     Active Substance: ZIPRASIDONE
  6. ALBUTEROL [Concomitant]
     Active Substance: ALBUTEROL
     Dosage: 2.5 MG/3 ML SOLUTION
  7. ASCORBIC ACID [Concomitant]
     Active Substance: ASCORBIC ACID

REACTIONS (9)
  - Acute respiratory failure [Fatal]
  - COVID-19 [Fatal]
  - COVID-19 pneumonia [Fatal]
  - Anaemia [Unknown]
  - Hypercoagulation [Unknown]
  - Metabolic encephalopathy [Unknown]
  - Hypoxia [Unknown]
  - Fibrin D dimer increased [Unknown]
  - Hyperglycaemia [Unknown]
